FAERS Safety Report 6882799-8 (Version None)
Quarter: 2010Q3

REPORT INFORMATION
  Report Type: 
  Country: None (occurrence: None)
  Receive Date: 20100729
  Receipt Date: 20100720
  Transmission Date: 20110219
  Serious: Yes (Other)
  Sender: FDA-Public Use
  Company Number: BR-ROCHE-717115

PATIENT
  Sex: Female
  Weight: 60 kg

DRUGS (8)
  1. TOCILIZUMAB [Suspect]
     Indication: RHEUMATOID ARTHRITIS
     Dosage: FORM: INFUSION
     Route: 042
     Dates: start: 20100513, end: 20100712
  2. METHOTREXATE [Concomitant]
  3. INSULIN [Concomitant]
     Dosage: 26 U/DAY
  4. METFORMIN HCL [Concomitant]
  5. OMEPRAZOLE [Concomitant]
  6. LEVOTHYROXINE SODIUM [Concomitant]
  7. CARBAMAZEPINE [Concomitant]
     Indication: DEPRESSION
     Dosage: AT NIGHT
  8. TRAMADOL HYDROCHLORIDE [Concomitant]

REACTIONS (4)
  - ARTHROPATHY [None]
  - DEPRESSION [None]
  - PETECHIAE [None]
  - THERAPEUTIC RESPONSE DECREASED [None]
